FAERS Safety Report 5384115-X (Version None)
Quarter: 2007Q3

REPORT INFORMATION
  Report Type: 
  Country: None (occurrence: None)
  Receive Date: 20070706
  Receipt Date: 20070517
  Transmission Date: 20080115
  Serious: No
  Sender: FDA-Public Use
  Company Number: PHEH2007US07838

PATIENT
  Age: 71 Year
  Sex: Male
  Weight: 88 kg

DRUGS (2)
  1. TEKTURNA [Suspect]
     Indication: HYPERTENSION
     Dosage: 150 MG, QD
     Dates: start: 20070427, end: 20070507
  2. CALAN [Concomitant]

REACTIONS (1)
  - HYPERTENSION [None]
